FAERS Safety Report 5431071-1 (Version None)
Quarter: 2007Q3

REPORT INFORMATION
  Report Type: 
  Country: None (occurrence: None)
  Receive Date: 20070830
  Receipt Date: 20070131
  Transmission Date: 20080115
  Serious: No
  Sender: FDA-Public Use
  Company Number: A0638041A

PATIENT
  Sex: Female

DRUGS (2)
  1. WELLBUTRIN XL [Suspect]
     Indication: DEPRESSION
     Route: 048
  2. ZOLOFT [Concomitant]
     Indication: DEPRESSION
     Route: 048

REACTIONS (3)
  - DRUG INEFFECTIVE [None]
  - LIBIDO INCREASED [None]
  - THERAPEUTIC RESPONSE UNEXPECTED [None]
